FAERS Safety Report 8843728 (Version 1)
Quarter: 2012Q4

REPORT INFORMATION
  Report Type: Report from Study
  Country: DE (occurrence: JP)
  Receive Date: 20121017
  Receipt Date: 20121017
  Transmission Date: 20130627
  Serious: Yes (Other)
  Sender: FDA-Public Use
  Company Number: JP-BRISTOL-MYERS SQUIBB COMPANY-17035965

PATIENT
  Age: 72 Year
  Sex: Male
  Weight: 64 kg

DRUGS (5)
  1. ERBITUX SOLN FOR INF 5MG/ML [Suspect]
     Indication: COLON CANCER
     Dosage: Skipped Wk:250mg,1 in 1wk,23Oct2008-16Sep2009.
17Oct08-17Oct08,Reg2:23Oct208-16Sep09
     Route: 041
     Dates: start: 20081017, end: 20090916
  2. IRINOTECAN [Concomitant]
     Indication: COLON CANCER
     Route: 041
     Dates: start: 20081017, end: 20090916
  3. CHLOR-TRIMETON [Concomitant]
     Indication: PREMEDICATION
     Route: 042
     Dates: start: 20081017
  4. DECADRON [Concomitant]
     Indication: PREMEDICATION
     Route: 042
     Dates: start: 20081017
  5. ZANTAC [Concomitant]
     Indication: GASTRITIS
     Route: 042

REACTIONS (2)
  - Vitreous haemorrhage [Recovered/Resolved]
  - Acne [Recovered/Resolved]
